FAERS Safety Report 4429467-X (Version None)
Quarter: 2004Q3

REPORT INFORMATION
  Report Type: 
  Country: None (occurrence: None)
  Receive Date: 20040816
  Receipt Date: 20040730
  Transmission Date: 20050211
  Serious: Yes (Death)
  Sender: FDA-Public Use
  Company Number: 04P-144-0268818-00

PATIENT
  Age: 11 Year
  Sex: Female
  Weight: 48 kg

DRUGS (4)
  1. AKINETON [Suspect]
     Indication: PSYCHOMOTOR AGITATION
     Dosage: 2.5 MG, 1 IN 1 D, INTRAMUSCULAR
     Route: 030
     Dates: start: 20031113, end: 20031113
  2. FLUPHENAZINE [Suspect]
     Indication: PSYCHOMOTOR AGITATION
     Dosage: 12 MG, 1 IN 1 D, INTRAMUSCULAR
     Route: 030
     Dates: start: 20031113, end: 20031113
  3. TRILEPTAL [Suspect]
     Indication: OBSESSIVE-COMPULSIVE DISORDER
     Dosage: 600 MG, 1 IN 1 D, PER ORAL
     Route: 048
     Dates: start: 20031015, end: 20031119
  4. RISPERIDONE [Suspect]
     Indication: OBSESSIVE-COMPULSIVE DISORDER
     Dosage: 2 MG, 1 IN 1 D, PER ORAL
     Route: 048
     Dates: start: 20031015, end: 20031119

REACTIONS (3)
  - ARRHYTHMIA [None]
  - MYOCARDITIS [None]
  - PYREXIA [None]
